FAERS Safety Report 8030071-5 (Version None)
Quarter: 2012Q1

REPORT INFORMATION
  Report Type: 
  Country: None (occurrence: None)
  Receive Date: 20120109
  Receipt Date: 20111227
  Transmission Date: 20120608
  Serious: Yes (Death, Hospitalization)
  Sender: FDA-Public Use
  Company Number: US-JNJFOC-20111212587

PATIENT
  Age: 27 Year
  Sex: Female

DRUGS (4)
  1. MEPROBAMATE [Concomitant]
     Indication: ILL-DEFINED DISORDER
     Route: 065
  2. ACETAMINOPHEN [Suspect]
     Indication: ILL-DEFINED DISORDER
     Route: 065
  3. CARISOPRODOL [Suspect]
     Indication: ILL-DEFINED DISORDER
     Route: 065
  4. ACETAMINOPHEN [Suspect]
     Route: 065

REACTIONS (6)
  - TOXICITY TO VARIOUS AGENTS [None]
  - BRAIN OEDEMA [None]
  - PULMONARY CONGESTION [None]
  - COMPLETED SUICIDE [None]
  - BRAIN HERNIATION [None]
  - PULMONARY OEDEMA [None]
